FAERS Safety Report 7864967-1 (Version None)
Quarter: 2011Q4

REPORT INFORMATION
  Report Type: 
  Country: None (occurrence: None)
  Receive Date: 20111028
  Receipt Date: 20111024
  Transmission Date: 20120403
  Serious: Yes (Hospitalization)
  Sender: FDA-Public Use
  Company Number: US-BAYER-2011-091844

PATIENT
  Age: 62 Year
  Sex: Male
  Weight: 112.3 kg

DRUGS (21)
  1. SARGRAMOSTIM [Suspect]
     Dosage: 250 ?G, QD
     Route: 058
     Dates: start: 20110720, end: 20110802
  2. CLONIDINE [Concomitant]
  3. LISINOPRIL [Concomitant]
  4. SARGRAMOSTIM [Suspect]
     Dosage: 250 ?G, QD
     Route: 058
     Dates: start: 20110810
  5. GLIMEPIRIDE [Concomitant]
  6. MDX-010 [Suspect]
     Dosage: 10 MG/KG, ONCE
     Route: 042
     Dates: start: 20110810, end: 20110810
  7. VITAMIN B6 [Concomitant]
  8. ANTIHYPERTENSIVES [Concomitant]
  9. DEXILANT [Concomitant]
  10. ACTOS [Concomitant]
  11. METFORMIN HCL [Concomitant]
  12. ALISKIREN [Concomitant]
  13. LANTUS [Concomitant]
  14. MDX-010 [Suspect]
     Indication: MALIGNANT MELANOMA
     Dosage: 10 MG/KG, ONCE
     Route: 042
     Dates: start: 20110720, end: 20110720
  15. MDX-010 [Suspect]
     Dosage: 10 MG/KG, ONCE
     Route: 042
     Dates: start: 20110914, end: 20110914
  16. LEXAPRO [Concomitant]
  17. TERAZOSIN HCL [Concomitant]
  18. ASPIRIN [Concomitant]
  19. MDX-010 [Suspect]
     Dosage: 10 MG/KG, ONCE
     Route: 042
     Dates: start: 20110629, end: 20110629
  20. SARGRAMOSTIM [Suspect]
     Indication: MALIGNANT MELANOMA
     Dosage: 250 ?G, QD
     Route: 058
     Dates: start: 20110629
  21. SARGRAMOSTIM [Suspect]
     Dosage: 250 ?G, QD
     Route: 058
     Dates: start: 20110914, end: 20110914

REACTIONS (3)
  - SYNCOPE [None]
  - HYPOTENSION [None]
  - DEHYDRATION [None]
